FAERS Safety Report 18649746 (Version 8)
Quarter: 2021Q4

REPORT INFORMATION
  Report Type: Spontaneous
  Country: US (occurrence: US)
  Receive Date: 20201222
  Receipt Date: 20211119
  Transmission Date: 20220303
  Serious: Yes (Death)
  Sender: FDA-Public Use
  Company Number: US-PFIZER INC-2020357903

PATIENT
  Age: 77 Year
  Sex: Male

DRUGS (1)
  1. IBRANCE [Suspect]
     Active Substance: PALBOCICLIB
     Indication: Breast cancer metastatic
     Dosage: 75 MG, ONCE A DAY (21 DAYS ON AND 1 WEEK OFF)
     Dates: start: 202002, end: 202109

REACTIONS (4)
  - Neoplasm progression [Fatal]
  - Blood iron decreased [Unknown]
  - Aspartate aminotransferase increased [Recovered/Resolved]
  - Product dispensing error [Unknown]

NARRATIVE: CASE EVENT DATE: 20200701
